FAERS Safety Report 9255317 (Version 1)
Quarter: 2013Q2

REPORT INFORMATION
  Report Type: Spontaneous
  Country: CH (occurrence: CH)
  Receive Date: 20130425
  Receipt Date: 20130425
  Transmission Date: 20140414
  Serious: Yes (Hospitalization)
  Sender: FDA-Public Use
  Company Number: CH-ASTRAZENECA-2013SE25983

PATIENT
  Age: 46 Year
  Sex: Female
  Weight: 67 kg

DRUGS (9)
  1. SEROQUEL [Suspect]
     Route: 048
     Dates: start: 201108
  2. CITALOPRAM ECOSOL [Suspect]
     Route: 048
     Dates: start: 201204
  3. GILENYA [Suspect]
     Indication: MULTIPLE SCLEROSIS
     Route: 048
     Dates: start: 20130306, end: 20130321
  4. LAMICTAL [Suspect]
     Indication: EPILEPSY
     Route: 048
     Dates: start: 201104
  5. ORFIRIL LONG [Suspect]
     Indication: EPILEPSY
     Route: 048
     Dates: start: 201203, end: 201203
  6. ORFIRIL LONG [Suspect]
     Indication: EPILEPSY
     Route: 048
     Dates: start: 20120320
  7. ESOMEP [Concomitant]
     Route: 048
     Dates: start: 2011
  8. TAMSULOSIN MEPHA [Concomitant]
     Indication: BLADDER DYSFUNCTION
     Route: 048
     Dates: start: 201206
  9. CALCIMAGON D3 [Concomitant]
     Route: 048

REACTIONS (3)
  - Depressed level of consciousness [Recovering/Resolving]
  - Electroencephalogram abnormal [Recovered/Resolved]
  - Petit mal epilepsy [Recovered/Resolved]
